FAERS Safety Report 20906032 (Version 1)
Quarter: 2022Q2

REPORT INFORMATION
  Report Type: Spontaneous
  Country: BR (occurrence: BR)
  Receive Date: 20220602
  Receipt Date: 20220602
  Transmission Date: 20220721
  Serious: Yes (Life-Threatening, Other)
  Sender: FDA-Public Use
  Company Number: BR-TAKEDA-2022TUS036490

PATIENT
  Age: 30 Year
  Sex: Male

DRUGS (16)
  1. HUMAN IMMUNOGLOBULIN G [Suspect]
     Active Substance: HUMAN IMMUNOGLOBULIN G
     Indication: Product used for unknown indication
     Dosage: UNK
     Route: 042
  2. HYQVIA [Suspect]
     Active Substance: HUMAN IMMUNOGLOBULIN G\HYALURONIDASE RECOMBINANT HUMAN
     Indication: Product used for unknown indication
     Dosage: UNK
     Route: 058
  3. VASOACTIVE INTESTINAL POLYPEPTIDE [Concomitant]
  4. NOREPINEPHRINE [Concomitant]
     Active Substance: NOREPINEPHRINE
     Dosage: 50 MILLILITER, Q1HR
  5. NOREPINEPHRINE [Concomitant]
     Active Substance: NOREPINEPHRINE
     Dosage: 20 UNK
  6. EPINEPHRINE [Concomitant]
     Active Substance: EPINEPHRINE
     Dosage: 20 MILLILITER, Q1HR
  7. RITUXIMAB-ABBS [Concomitant]
     Active Substance: RITUXIMAB-ABBS
  8. METHYLPREDNISOLONE [Concomitant]
     Active Substance: METHYLPREDNISOLONE
  9. PIPERACILLIN AND TAZOBACTAM [Concomitant]
     Active Substance: PIPERACILLIN SODIUM\TAZOBACTAM SODIUM
  10. NEOSTIGMINE [Concomitant]
     Active Substance: NEOSTIGMINE
  11. BACTRIM [Concomitant]
     Active Substance: SULFAMETHOXAZOLE\TRIMETHOPRIM
  12. ENOXAPARIN [Concomitant]
     Active Substance: ENOXAPARIN
  13. WARFARIN [Concomitant]
     Active Substance: WARFARIN
  14. PREDNISONE [Concomitant]
     Active Substance: PREDNISONE
  15. FLUCONAZOLE [Concomitant]
     Active Substance: FLUCONAZOLE
  16. LEVAMISOLE [Concomitant]
     Active Substance: LEVAMISOLE

REACTIONS (8)
  - Adverse event [Recovering/Resolving]
  - Anaphylactic reaction [Unknown]
  - Pneumonia [Recovering/Resolving]
  - Thrombosis [Unknown]
  - Hemiparesis [Unknown]
  - X-ray abnormal [Recovering/Resolving]
  - Candida infection [Unknown]
  - Inappropriate schedule of product administration [Unknown]
